FAERS Safety Report 5693533-1 (Version None)
Quarter: 2008Q2

REPORT INFORMATION
  Report Type: 
  Country: None (occurrence: None)
  Receive Date: 20080403
  Receipt Date: 20080402
  Transmission Date: 20081010
  Serious: Yes (Other)
  Sender: FDA-Public Use
  Company Number: A0718795A

PATIENT
  Age: 47 Year
  Sex: Female
  Weight: 72.7 kg

DRUGS (3)
  1. ALLI [Suspect]
     Dates: start: 20080325, end: 20080328
  2. SYNTHROID [Concomitant]
     Indication: HYPOTHYROIDISM
  3. MULTI-VITAMIN [Concomitant]
     Dates: start: 20080325, end: 20080328

REACTIONS (11)
  - ABDOMINAL DISTENSION [None]
  - ABDOMINAL RIGIDITY [None]
  - ABNORMAL FAECES [None]
  - CONSTIPATION [None]
  - DIARRHOEA [None]
  - FAECAL INCONTINENCE [None]
  - FALL [None]
  - LOSS OF CONSCIOUSNESS [None]
  - POLYDIPSIA [None]
  - THIRST [None]
  - VOMITING [None]
